FAERS Safety Report 9238438 (Version 2)
Quarter: 2013Q2

REPORT INFORMATION
  Report Type: Spontaneous
  Country: US (occurrence: None)
  Receive Date: 20130416
  Receipt Date: 20130604
  Transmission Date: 20140414
  Serious: Yes (Other)
  Sender: FDA-Public Use
  Company Number: A1019257A

PATIENT
  Age: 87 Year
  Sex: Male

DRUGS (2)
  1. CALCIUM CARBONATE [Suspect]
     Indication: GASTROOESOPHAGEAL REFLUX DISEASE
     Dosage: UNK/ SEE DOSAGE TEXT/ UNKNOWN
  2. CALCIUM CARBONATE (FORMULATION UNKNOWN) (CALCIUM CARBONATE) [Suspect]
     Indication: GASTROOESOPHAGEAL REFLUX DISEASE

REACTIONS (6)
  - Haemorrhage [None]
  - Vascular rupture [None]
  - Erythema [None]
  - Vomiting [None]
  - Retching [None]
  - Drug administration error [None]
